FAERS Safety Report 8894789 (Version 3)
Quarter: 2018Q1

REPORT INFORMATION
  Report Type: Report from Study
  Country: CA (occurrence: CA)
  Receive Date: 20121107
  Receipt Date: 20180308
  Transmission Date: 20180509
  Serious: Yes (Life-Threatening, Hospitalization)
  Sender: FDA-Public Use
  Company Number: PHHY2009CA04281

PATIENT
  Sex: Male

DRUGS (1)
  1. SANDOSTATIN LAR DEPOT [Suspect]
     Active Substance: OCTREOTIDE ACETATE
     Indication: NEUROENDOCRINE TUMOUR
     Dosage: 30 MG, UNK
     Route: 030
     Dates: start: 20080529

REACTIONS (11)
  - Post procedural bile leak [Recovering/Resolving]
  - Diarrhoea [Unknown]
  - Asthenia [Recovering/Resolving]
  - Weight decreased [Unknown]
  - Depression [Unknown]
  - Post procedural complication [Recovering/Resolving]
  - Clostridium difficile infection [Recovering/Resolving]
  - Hepatic lesion [Unknown]
  - Infection [Unknown]
  - Gastrointestinal pain [Unknown]
  - Fatigue [Unknown]
